FAERS Safety Report 6458281-9 (Version None)
Quarter: 2009Q4

REPORT INFORMATION
  Report Type: 
  Country: None (occurrence: None)
  Receive Date: 20091125
  Receipt Date: 20091119
  Transmission Date: 20100525
  Serious: Yes (Hospitalization, Other)
  Sender: FDA-Public Use
  Company Number: US-AMGEN-QUU375496

PATIENT
  Sex: Female

DRUGS (2)
  1. ENBREL [Suspect]
     Indication: PSORIATIC ARTHROPATHY
     Route: 058
     Dates: start: 20050801
  2. ENBREL [Suspect]
     Indication: PSORIASIS

REACTIONS (3)
  - FOETAL MALPOSITION [None]
  - MASTITIS [None]
  - PLACENTAL DISORDER [None]
